FAERS Safety Report 24540959 (Version 1)
Quarter: 2024Q4

REPORT INFORMATION
  Report Type: Spontaneous
  Country: US (occurrence: None)
  Receive Date: 20241023
  Receipt Date: 20241023
  Transmission Date: 20250115
  Serious: No
  Sender: Public
  Company Number: None

PATIENT

DRUGS (2)
  1. GLIPIZIDE [Suspect]
     Active Substance: GLIPIZIDE
  2. GLICLAZIDE [Suspect]
     Active Substance: GLICLAZIDE

REACTIONS (5)
  - Back pain [None]
  - Pain in extremity [None]
  - Pain [None]
  - Wrong product administered [None]
  - Product dispensing error [None]
